FAERS Safety Report 9843370 (Version 2)
Quarter: 2014Q1

REPORT INFORMATION
  Report Type: Spontaneous
  Country: CA (occurrence: CA)
  Receive Date: 20140125
  Receipt Date: 20140327
  Transmission Date: 20141002
  Serious: Yes (Death)
  Sender: FDA-Public Use
  Company Number: CA-JNJFOC-20140114428

PATIENT
  Age: 58 Year
  Sex: Female
  Weight: 100 kg

DRUGS (2)
  1. ACETAMINOPHEN [Suspect]
     Indication: PAIN IN EXTREMITY
     Route: 065
  2. ACETAMINOPHEN [Suspect]
     Indication: CHEST PAIN
     Route: 065

REACTIONS (6)
  - Multi-organ failure [Fatal]
  - Analgesic drug level increased [Fatal]
  - Hepatic necrosis [Fatal]
  - Hepatitis fulminant [Fatal]
  - Rhabdomyolysis [Fatal]
  - Toxicity to various agents [Fatal]
